FAERS Safety Report 11331923 (Version 1)
Quarter: 2015Q3

REPORT INFORMATION
  Report Type: Spontaneous
  Country: US (occurrence: US)
  Receive Date: 20150803
  Receipt Date: 20150803
  Transmission Date: 20151125
  Serious: No
  Sender: FDA-Public Use
  Company Number: US-ELI_LILLY_AND_COMPANY-US200806002013

PATIENT
  Sex: Male

DRUGS (4)
  1. ZYPREXA [Suspect]
     Active Substance: OLANZAPINE
     Dosage: 5 MG, UNK
  2. ZYPREXA [Suspect]
     Active Substance: OLANZAPINE
     Indication: BIPOLAR II DISORDER
     Dosage: 10 MG, UNK
     Dates: start: 200708
  3. DEPAKOTE [Concomitant]
     Active Substance: DIVALPROEX SODIUM
     Dosage: 500 MG, UNK
  4. LITHIUM. [Concomitant]
     Active Substance: LITHIUM

REACTIONS (8)
  - Weight increased [Unknown]
  - Diplopia [Unknown]
  - Dyspnoea [Unknown]
  - Sleep disorder [Unknown]
  - Fatigue [Unknown]
  - Nervousness [Unknown]
  - Insomnia [Unknown]
  - Paraesthesia [Unknown]
